FAERS Safety Report 18623014 (Version 1)
Quarter: 2020Q4

REPORT INFORMATION
  Report Type: Spontaneous
  Country: US (occurrence: US)
  Receive Date: 20201216
  Receipt Date: 20201216
  Transmission Date: 20210114
  Serious: Yes (Hospitalization, Other)
  Sender: FDA-Public Use
  Company Number: US-009507513-2012USA005957

PATIENT
  Age: 71 Year
  Sex: Female

DRUGS (11)
  1. BONIVA [Suspect]
     Active Substance: IBANDRONATE SODIUM
     Dosage: 150 MILLIGRAM
     Route: 065
     Dates: start: 20100912
  2. FOSAMAX [Suspect]
     Active Substance: ALENDRONATE SODIUM
     Dosage: 70 MILLIGRAM
     Route: 065
     Dates: start: 20030331
  3. BONIVA [Suspect]
     Active Substance: IBANDRONATE SODIUM
     Dosage: 150 MILLIGRAM
     Route: 065
     Dates: start: 20061128
  4. BONIVA [Suspect]
     Active Substance: IBANDRONATE SODIUM
     Indication: OSTEOPOROSIS
     Dosage: 150 MILLIGRAM
     Route: 065
     Dates: start: 20060402
  5. BONIVA [Suspect]
     Active Substance: IBANDRONATE SODIUM
     Dosage: 150 MILLIGRAM
     Route: 065
     Dates: start: 20060606
  6. BONIVA [Suspect]
     Active Substance: IBANDRONATE SODIUM
     Dosage: 150 MILLIGRAM
     Route: 065
     Dates: start: 20060912, end: 201011
  7. BONIVA [Suspect]
     Active Substance: IBANDRONATE SODIUM
     Dosage: 150 MILLIGRAM
     Route: 065
     Dates: start: 20100916
  8. FOSAMAX [Suspect]
     Active Substance: ALENDRONATE SODIUM
     Indication: OSTEOPOROSIS
     Dosage: UNK
     Route: 065
     Dates: start: 200106, end: 200604
  9. FOSAMAX [Suspect]
     Active Substance: ALENDRONATE SODIUM
     Dosage: 70 MILLIGRAM
     Route: 065
     Dates: start: 20040117
  10. FOSAMAX [Suspect]
     Active Substance: ALENDRONATE SODIUM
     Dosage: 70 MILLIGRAM
     Route: 065
     Dates: start: 20060226
  11. BONIVA [Suspect]
     Active Substance: IBANDRONATE SODIUM
     Dosage: 150 MILLIGRAM
     Route: 065
     Dates: start: 200604, end: 201011

REACTIONS (5)
  - Emotional distress [Unknown]
  - Anxiety [Unknown]
  - Atypical femur fracture [Unknown]
  - Low turnover osteopathy [Unknown]
  - Femur fracture [Unknown]

NARRATIVE: CASE EVENT DATE: 20101210
